FAERS Safety Report 6199088-X (Version None)
Quarter: 2009Q2

REPORT INFORMATION
  Report Type: 
  Country: None (occurrence: None)
  Receive Date: 20090519
  Receipt Date: 20090519
  Transmission Date: 20091009
  Serious: Yes (Life-Threatening, Hospitalization)
  Sender: FDA-Public Use
  Company Number: None

PATIENT
  Age: 76 Year
  Sex: Male

DRUGS (13)
  1. DOCETAXEL [Suspect]
     Indication: NEOPLASM MALIGNANT
     Dates: start: 20090424, end: 20090428
  2. ASPIRIN TAB [Concomitant]
  3. DEXTROSE/HEPARIN INJ,SOLN HEPARIN SODIUM [Concomitant]
  4. HYDRALAZINE TAB [Concomitant]
  5. MEGESTROL SUSP [Concomitant]
  6. METOPROLOL TARTRATE TAB [Concomitant]
  7. MORPHINE SULFATE [Concomitant]
  8. NITROGLYCERIN INJECTION [Concomitant]
  9. OMEPRAZOLE [Concomitant]
  10. SENNOSIDES TAB [Concomitant]
  11. SEVELAMER TAB [Concomitant]
  12. SIMVASTATIN [Concomitant]
  13. TEMAZEPAM CAP [Concomitant]

REACTIONS (17)
  - ANAEMIA [None]
  - BLOOD PRESSURE INCREASED [None]
  - CARDIAC FAILURE CONGESTIVE [None]
  - CARDIAC MURMUR [None]
  - CHEST PAIN [None]
  - DIASTOLIC DYSFUNCTION [None]
  - HEART RATE INCREASED [None]
  - MUSCLE TIGHTNESS [None]
  - NAUSEA [None]
  - PALPITATIONS [None]
  - REFUSAL OF TREATMENT BY PATIENT [None]
  - SCAN MYOCARDIAL PERFUSION ABNORMAL [None]
  - SCROTAL OEDEMA [None]
  - SINUS BRADYCARDIA [None]
  - SOMNOLENCE [None]
  - VENTRICULAR HYPOKINESIA [None]
  - VOMITING [None]
